FAERS Safety Report 9810551 (Version 4)
Quarter: 2015Q3

REPORT INFORMATION
  Report Type: Spontaneous
  Country: US (occurrence: US)
  Receive Date: 20140110
  Receipt Date: 20150728
  Transmission Date: 20151125
  Serious: Yes (Other)
  Sender: FDA-Public Use
  Company Number: US-SANOFI-AVENTIS-2013SA000505

PATIENT
  Age: 52 Year
  Sex: Male

DRUGS (3)
  1. PLAVIX [Suspect]
     Active Substance: CLOPIDOGREL BISULFATE
     Indication: STENT PLACEMENT
     Route: 065
     Dates: start: 20080301, end: 201110
  2. ASPIRIN. [Concomitant]
     Active Substance: ASPIRIN
     Dates: start: 20080301, end: 2014
  3. PLAVIX [Suspect]
     Active Substance: CLOPIDOGREL BISULFATE
     Indication: ACUTE CORONARY SYNDROME
     Route: 065
     Dates: start: 20080301, end: 201110

REACTIONS (6)
  - Gastrointestinal haemorrhage [Recovered/Resolved]
  - Epistaxis [Unknown]
  - Haematochezia [Unknown]
  - Ulcer haemorrhage [Unknown]
  - Multiple injuries [Unknown]
  - Thrombotic thrombocytopenic purpura [Unknown]

NARRATIVE: CASE EVENT DATE: 201103
